FAERS Safety Report 24991459 (Version 1)
Quarter: 2025Q1

REPORT INFORMATION
  Report Type: Spontaneous
  Country: US (occurrence: US)
  Receive Date: 20250220
  Receipt Date: 20250220
  Transmission Date: 20250409
  Serious: Yes (Other)
  Sender: MYLAN
  Company Number: US-MYLANLABS-2025M1013329

PATIENT
  Sex: Female
  Weight: 49.9 kg

DRUGS (2)
  1. DILANTIN [Suspect]
     Active Substance: PHENYTOIN
     Indication: Seizure
     Dosage: 100 MILLIGRAM, TID (THREE TIMES A DAY)
     Route: 048
     Dates: start: 197401
  2. DILANTIN [Suspect]
     Active Substance: PHENYTOIN
     Indication: Epilepsy
     Dosage: 100 MILLIGRAM, TID (THREE TIMES A DAY)
     Route: 048
     Dates: start: 197401

REACTIONS (4)
  - Loss of consciousness [Unknown]
  - Drug level decreased [Unknown]
  - Cardiac disorder [Unknown]
  - Hypersensitivity [Unknown]
